FAERS Safety Report 5989444-4 (Version None)
Quarter: 2008Q4

REPORT INFORMATION
  Report Type: 
  Country: None (occurrence: None)
  Receive Date: 20081205
  Receipt Date: 20081121
  Transmission Date: 20090506
  Serious: Yes (Hospitalization)
  Sender: FDA-Public Use
  Company Number: KV200800622

PATIENT
  Age: 72 Year
  Sex: Male

DRUGS (12)
  1. ISOSORBIDE DINITRATE [Suspect]
     Indication: CHEST PAIN
     Dosage: 60 MG, ONE TABLET QD, ORAL
     Route: 048
     Dates: start: 20070101
  2. PROCARDIA [Concomitant]
  3. ENALAPRIL MALEATE [Concomitant]
  4. INEAPAMIDE [Concomitant]
  5. PREVACID [Concomitant]
  6. COATED ASPIRIN (ACETYLSALICYLIC ACID) [Concomitant]
  7. NITROQUICK (GLYCERYL TRINITRATE) [Concomitant]
  8. RANEXA (RANOLAZINE) [Concomitant]
  9. VYTORIN [Concomitant]
  10. STOOL SOFTNER (DOCUSATE SODIUM) [Concomitant]
  11. MIRALAX [Concomitant]
  12. MINERAL OIL EMULSION (MINERAL OIL EMULSION) [Concomitant]

REACTIONS (2)
  - GASTROINTESTINAL HAEMORRHAGE [None]
  - MYALGIA [None]
